FAERS Safety Report 20984270 (Version 2)
Quarter: 2022Q3

REPORT INFORMATION
  Report Type: Spontaneous
  Country: US (occurrence: US)
  Receive Date: 20220621
  Receipt Date: 20220715
  Transmission Date: 20221027
  Serious: No
  Sender: FDA-Public Use
  Company Number: US-ELI_LILLY_AND_COMPANY-US202206002765

PATIENT
  Age: 87 Year
  Sex: Male

DRUGS (4)
  1. HUMALOG KWIKPEN [Suspect]
     Active Substance: INSULIN LISPRO
     Indication: Type 2 diabetes mellitus
     Dosage: UNK UNK, OTHER (SLIDING SCALE)
     Route: 058
     Dates: start: 20220415
  2. HUMALOG KWIKPEN [Suspect]
     Active Substance: INSULIN LISPRO
     Indication: Type 2 diabetes mellitus
     Dosage: UNK UNK, OTHER (SLIDING SCALE)
     Route: 058
     Dates: start: 20220415
  3. HUMALOG KWIKPEN [Suspect]
     Active Substance: INSULIN LISPRO
     Dosage: UNK UNK, UNKNOWN (SLIDING SCALE)
     Route: 058
     Dates: start: 20220415
  4. HUMALOG KWIKPEN [Suspect]
     Active Substance: INSULIN LISPRO
     Dosage: UNK UNK, UNKNOWN (SLIDING SCALE)
     Route: 058
     Dates: start: 20220415

REACTIONS (4)
  - COVID-19 [Unknown]
  - Frequent bowel movements [Unknown]
  - Hunger [Unknown]
  - Increased appetite [Unknown]

NARRATIVE: CASE EVENT DATE: 20220415
